FAERS Safety Report 4722201-5 (Version None)
Quarter: 2005Q3

REPORT INFORMATION
  Report Type: 
  Country: None (occurrence: None)
  Receive Date: 20050722
  Receipt Date: 20040830
  Transmission Date: 20060218
  Serious: Yes (Other)
  Sender: FDA-Public Use
  Company Number: US-GLAXOSMITHKLINE-A0524346A

PATIENT
  Sex: Female
  Weight: 200 kg

DRUGS (7)
  1. AVANDIA [Suspect]
     Dosage: 4MG PER DAY
     Route: 048
     Dates: start: 19991210, end: 20020101
  2. GLYBURIDE [Concomitant]
     Dates: start: 19991210
  3. TAGAMET [Concomitant]
  4. NORVASC [Concomitant]
  5. CLONIDINE [Concomitant]
  6. METOCLOPRAMIDE [Concomitant]
  7. ACCUPRIL [Concomitant]

REACTIONS (1)
  - CARDIAC FAILURE CONGESTIVE [None]
